FAERS Safety Report 5175020-2 (Version None)
Quarter: 2006Q4

REPORT INFORMATION
  Report Type: 
  Country: None (occurrence: None)
  Receive Date: 20061214
  Receipt Date: 20060528
  Transmission Date: 20070319
  Serious: No
  Sender: FDA-Public Use
  Company Number: US-AMGEN-KDL181152

PATIENT
  Sex: Male

DRUGS (2)
  1. ENBREL [Suspect]
     Indication: PSORIATIC ARTHROPATHY
     Route: 058
     Dates: start: 20051115
  2. METHOTREXATE [Concomitant]
     Dates: start: 20030101

REACTIONS (3)
  - HEADACHE [None]
  - PAIN IN EXTREMITY [None]
  - PYREXIA [None]
